FAERS Safety Report 23035417 (Version 1)
Quarter: 2023Q4

REPORT INFORMATION
  Report Type: Spontaneous
  Country: US (occurrence: US)
  Receive Date: 20231006
  Receipt Date: 20231006
  Transmission Date: 20240110
  Serious: Yes (Other)
  Sender: FDA-Public Use
  Company Number: US-ABBVIE-5436605

PATIENT
  Sex: Female

DRUGS (11)
  1. HUMIRA [Suspect]
     Active Substance: ADALIMUMAB
     Indication: Colitis ulcerative
     Route: 058
  2. XELJANZ [Suspect]
     Active Substance: TOFACITINIB CITRATE
     Indication: Colitis ulcerative
     Dosage: 5 MG TABLET BY MOUTH IN THE MORNING AND AT NIGHT, THERAPY START DATE: 2019 OR 2020
     Route: 048
  3. DULOXETINE [Concomitant]
     Active Substance: DULOXETINE
     Indication: Neuropathy peripheral
     Dosage: BEEN ON IT AT LEAST 4 YEARS
  4. ATORVASTATIN [Concomitant]
     Active Substance: ATORVASTATIN
     Indication: Blood cholesterol increased
     Dosage: ATORVASTATIN: BEEN ON IT MANY YEARS
  5. LOSARTAN [Concomitant]
     Active Substance: LOSARTAN
     Indication: Cardiac disorder
     Dosage: BEEN ON IT A YEAR. IS NOT SURE IF TAKES THAT FOR ARRHYTHMIA, BUT IT IS ONE OF HEART MEDICATIONS. ...
  6. DILTIAZEM [Concomitant]
     Active Substance: DILTIAZEM
     Indication: Product used for unknown indication
     Dosage: DILTIAZEM: BEEN ON IT AT LEAST 2 YEARS. ISN^T SURE BECAUSE THEY SWITCH HEART MEDICATIONS AROUND A...
  7. ASPIRIN [Concomitant]
     Active Substance: ASPIRIN
     Indication: Cardiac disorder
     Dosage: LOW DOSE ASPIRIN, ADDITIONAL INFORMATION FOR OTHER MEDICINES LOW DOSE?ASPIRIN: BEEN TAKING FOR YE...
  8. VITAMIN D3 [Concomitant]
     Active Substance: CHOLECALCIFEROL
     Indication: Bone disorder
     Dosage: D3: BEEN TAKING FOR ABOUT A YEAR. TAKES IT FOR HER BONE, OLD LADY BONES.
  9. PANTOPRAZOLE [Concomitant]
     Active Substance: PANTOPRAZOLE
     Indication: Gastrooesophageal reflux disease
     Dosage: PANTOPRAZOLE: CAN TAKE PRESCRIPTION OR OVER-THE- COUNTER. BEEN ON IT MORE THAN 10 YEARS.
  10. PROLIA [Concomitant]
     Active Substance: DENOSUMAB
     Indication: Bone disorder
     Dosage: BEEN TAKING PROLIA SHOT FOR A YEAR AND A HALF
  11. ZILLION [Concomitant]
     Indication: Product used for unknown indication

REACTIONS (9)
  - Hip surgery [Unknown]
  - Speech disorder [Unknown]
  - Drug ineffective [Unknown]
  - Renal function test abnormal [Unknown]
  - Glomerular filtration rate decreased [Unknown]
  - Mobility decreased [Unknown]
  - Arthritis [Unknown]
  - Autoimmune disorder [Unknown]
  - Type 2 diabetes mellitus [Recovering/Resolving]

NARRATIVE: CASE EVENT DATE: 20230601
